FAERS Safety Report 15308906 (Version 1)
Quarter: 2018Q3

REPORT INFORMATION
  Report Type: Spontaneous
  Country: CL (occurrence: CL)
  Receive Date: 20180823
  Receipt Date: 20180823
  Transmission Date: 20181010
  Serious: Yes (Other)
  Sender: FDA-Public Use
  Company Number: CL-MERCK KGAA-2054119

PATIENT
  Sex: Female

DRUGS (3)
  1. ROCALTROL [Concomitant]
     Active Substance: CALCITRIOL
  2. NOVOTHYROX [Suspect]
     Active Substance: LEVOTHYROXINE SODIUM
     Indication: HYPOTHYROIDISM
  3. CALCIUM [Concomitant]
     Active Substance: CALCIUM

REACTIONS (8)
  - Dyspepsia [None]
  - Muscle spasms [None]
  - Organ failure [None]
  - Cardiac arrest [None]
  - Hospitalisation [None]
  - Nervousness [None]
  - Hypocalcaemia [None]
  - Vomiting [None]
